FAERS Safety Report 23256756 (Version 1)
Quarter: 2023Q4

REPORT INFORMATION
  Report Type: Spontaneous
  Country: JP (occurrence: JP)
  Receive Date: 20231204
  Receipt Date: 20231204
  Transmission Date: 20240110
  Serious: Yes (Other)
  Sender: FDA-Public Use
  Company Number: JP-GILEAD-2023-0652676

PATIENT
  Age: 64 Year
  Sex: Male

DRUGS (1)
  1. HARVONI [Suspect]
     Active Substance: LEDIPASVIR\SOFOSBUVIR
     Indication: Chronic hepatitis C
     Dosage: UNK
     Route: 065

REACTIONS (10)
  - Hepatocellular carcinoma [Unknown]
  - Hepatocellular carcinoma [Unknown]
  - Metastases to lymph nodes [Unknown]
  - Hepatocellular carcinoma [Unknown]
  - Metastases to lymph nodes [Unknown]
  - Hepatocellular carcinoma [Unknown]
  - Metastases to the mediastinum [Unknown]
  - Hepatocellular carcinoma [Unknown]
  - Tumour invasion [Unknown]
  - Hepatocellular carcinoma [Unknown]
